FAERS Safety Report 8232456-0 (Version None)
Quarter: 2012Q1

REPORT INFORMATION
  Report Type: 
  Country: None (occurrence: None)
  Receive Date: 20120320
  Receipt Date: 20120315
  Transmission Date: 20120608
  Serious: Yes (Hospitalization, Disabling, Other)
  Sender: FDA-Public Use
  Company Number: 2010SP031888

PATIENT
  Age: 21 Year
  Sex: Female
  Weight: 78 kg

DRUGS (4)
  1. FENTANYL [Suspect]
     Indication: PRODUCT USED FOR UNKNOWN INDICATION
     Dosage: ;IV
     Route: 042
     Dates: end: 20090501
  2. NUVARING [Suspect]
     Indication: CONTRACEPTION
     Dosage: 1 DF;QM;VAG
     Route: 067
     Dates: start: 20081201, end: 20090304
  3. ZOLOFT [Concomitant]
  4. TRILEPTAL [Concomitant]

REACTIONS (55)
  - VOMITING [None]
  - PULMONARY HYPERTENSION [None]
  - CARDIOMEGALY [None]
  - COAGULATION FACTOR VIII LEVEL INCREASED [None]
  - BRONCHITIS [None]
  - SINUS TACHYCARDIA [None]
  - ECZEMA [None]
  - HEAD INJURY [None]
  - RESPIRATORY TRACT INFECTION [None]
  - PULMONARY INFARCTION [None]
  - MALAISE [None]
  - ANXIETY [None]
  - COGNITIVE DISORDER [None]
  - ANTIPHOSPHOLIPID ANTIBODIES POSITIVE [None]
  - HERPES SIMPLEX [None]
  - UPPER RESPIRATORY TRACT INFECTION [None]
  - PERICARDIAL EFFUSION [None]
  - HYPOAESTHESIA [None]
  - PHARYNGITIS [None]
  - NASOPHARYNGITIS [None]
  - PULMONARY EMBOLISM [None]
  - THERMAL BURN [None]
  - SYSTOLIC DYSFUNCTION [None]
  - ANAEMIA [None]
  - OEDEMA PERIPHERAL [None]
  - PHOTOPHOBIA [None]
  - HYPERCOAGULATION [None]
  - ATELECTASIS [None]
  - FALL [None]
  - PNEUMONIA PRIMARY ATYPICAL [None]
  - HEADACHE [None]
  - LOSS OF CONSCIOUSNESS [None]
  - LIGAMENT SPRAIN [None]
  - MENTAL DISORDER [None]
  - PULMONARY GRANULOMA [None]
  - PLEURAL EFFUSION [None]
  - STREPTOCOCCAL INFECTION [None]
  - CERVICAL DYSPLASIA [None]
  - EXCORIATION [None]
  - LIMB INJURY [None]
  - CONVULSION [None]
  - HEARING IMPAIRED [None]
  - MUSCULOSKELETAL CHEST PAIN [None]
  - DRUG INEFFECTIVE [None]
  - SYNCOPE [None]
  - HYPOTENSION [None]
  - PARAESTHESIA [None]
  - DIZZINESS [None]
  - ASTHMA [None]
  - KIDNEY INFECTION [None]
  - ACUTE SINUSITIS [None]
  - HAEMOPTYSIS [None]
  - RHINORRHOEA [None]
  - SUBCUTANEOUS EMPHYSEMA [None]
  - MYALGIA [None]
